FAERS Safety Report 25918833 (Version 1)
Quarter: 2025Q4

REPORT INFORMATION
  Report Type: Report from Study
  Country: CA (occurrence: CA)
  Receive Date: 20251014
  Receipt Date: 20251014
  Transmission Date: 20260118
  Serious: Yes (Other)
  Sender: ABBVIE
  Company Number: CA-ABBVIE-6496377

PATIENT
  Age: 30 Year
  Sex: Male

DRUGS (1)
  1. SKYRIZI [Suspect]
     Active Substance: RISANKIZUMAB-RZAA
     Indication: Crohn^s disease
     Dosage: DOSE FORM: SOLUTION FOR INJECTION IN PRE-FILLED INJECTOR
     Route: 058

REACTIONS (7)
  - Intestinal resection [Unknown]
  - Gastrointestinal disorder [Unknown]
  - Abdominal distension [Unknown]
  - Gastric operation [Unknown]
  - Adhesiolysis [Unknown]
  - Abscess [Unknown]
  - Intestinal dilatation [Unknown]

NARRATIVE: CASE EVENT DATE: 20251006
